FAERS Safety Report 17585849 (Version 1)
Quarter: 2020Q1

REPORT INFORMATION
  Report Type: Spontaneous
  Country: US (occurrence: US)
  Receive Date: 20200326
  Receipt Date: 20200326
  Transmission Date: 20200409
  Serious: Yes (Hospitalization, Other)
  Sender: FDA-Public Use
  Company Number: US-PFIZER INC-2018354770

PATIENT
  Age: 66 Year
  Sex: Male

DRUGS (1)
  1. LYRICA [Suspect]
     Active Substance: PREGABALIN
     Dosage: UNK

REACTIONS (5)
  - Blood potassium decreased [Unknown]
  - Hypotension [Unknown]
  - Corona virus infection [Recovered/Resolved]
  - Oxygen saturation decreased [Unknown]
  - Prescription drug used without a prescription [Unknown]
